FAERS Safety Report 5053428-3 (Version None)
Quarter: 2006Q2

REPORT INFORMATION
  Report Type: 
  Country: None (occurrence: None)
  Receive Date: 20060614
  Receipt Date: 20060329
  Transmission Date: 20061013
  Serious: Yes (Other)
  Sender: FDA-Public Use
  Company Number: 442508

PATIENT
  Age: 64 Year
  Sex: Female

DRUGS (7)
  1. BONIVA [Suspect]
     Indication: OSTEOPOROSIS
     Dosage: 150 MG 1 PER 1 MONTH ORAL
     Route: 048
     Dates: start: 20050425
  2. DIOVAN HCT [Concomitant]
  3. EFFEXOR [Concomitant]
  4. SYNVISC (HYALURONATE SODIUM) [Concomitant]
  5. AMOXICILLIN [Concomitant]
  6. SYNTHROID [Concomitant]
  7. ZOCOR [Concomitant]

REACTIONS (1)
  - OSTEONECROSIS [None]
